FAERS Safety Report 9454714 (Version 1)
Quarter: 2013Q3

REPORT INFORMATION
  Report Type: Spontaneous
  Country: US (occurrence: US)
  Receive Date: 20130812
  Receipt Date: 20130812
  Transmission Date: 20140515
  Serious: No
  Sender: FDA-Public Use
  Company Number: US-009507513-1308USA002615

PATIENT
  Age: 79 Year
  Sex: Female

DRUGS (3)
  1. JANUVIA [Suspect]
     Indication: DIABETES MELLITUS
     Dosage: 100 MG, ONCE PER DAY
     Route: 048
     Dates: start: 201108
  2. METFORMIN [Concomitant]
  3. GLYBURIDE [Concomitant]

REACTIONS (2)
  - Blood glucose increased [Unknown]
  - Drug dose omission [Unknown]
